FAERS Safety Report 7410845-1 (Version None)
Quarter: 2011Q1

REPORT INFORMATION
  Report Type: 
  Country: None (occurrence: None)
  Receive Date: 20110302
  Receipt Date: 20100712
  Transmission Date: 20110831
  Serious: Yes (Death, Other)
  Sender: FDA-Public Use
  Company Number: 163-21880-10022026

PATIENT
  Age: 75 Year
  Sex: Male

DRUGS (11)
  1. ACYCLOVIR [Concomitant]
  2. DIGOXIN [Concomitant]
  3. REVLIMID [Suspect]
     Indication: MULTIPLE MYELOMA
     Dosage: 25 MG, 1 IN 1 D, PO, 10 MG, DAILY FOR 14 DAYS, PO
     Route: 048
     Dates: start: 20100201
  4. REVLIMID [Suspect]
     Indication: MULTIPLE MYELOMA
     Dosage: 25 MG, 1 IN 1 D, PO, 10 MG, DAILY FOR 14 DAYS, PO
     Route: 048
     Dates: start: 20090901
  5. BACTRIM [Concomitant]
  6. LYRICA [Concomitant]
  7. VELCADE [Concomitant]
  8. COUMADIN [Concomitant]
  9. IMODIUM [Concomitant]
  10. XANAX [Concomitant]
  11. MELPHALAN HYDROCHLORIDE [Concomitant]

REACTIONS (7)
  - DEATH [None]
  - FATIGUE [None]
  - PLATELET COUNT DECREASED [None]
  - CONSTIPATION [None]
  - ANAEMIA [None]
  - WHITE BLOOD CELL COUNT DECREASED [None]
  - EPISTAXIS [None]
